FAERS Safety Report 7649905-9 (Version None)
Quarter: 2011Q3

REPORT INFORMATION
  Report Type: 
  Country: None (occurrence: None)
  Receive Date: 20110802
  Receipt Date: 20080721
  Transmission Date: 20111222
  Serious: Yes (Death, Disabling)
  Sender: FDA-Public Use
  Company Number: US-BAYER-200824301NA

PATIENT
  Age: 54 Year
  Sex: Male
  Weight: 82.993 kg

DRUGS (7)
  1. ATENOLOL [Concomitant]
  2. MAGNEVIST [Suspect]
     Indication: NUCLEAR MAGNETIC RESONANCE IMAGING
     Dates: start: 20060622, end: 20060622
  3. COUMADIN [Concomitant]
  4. LISINOPRIL [Concomitant]
  5. DIOVAN HCT [Concomitant]
  6. MAGNEVIST [Suspect]
     Dosage: UNK
     Route: 042
     Dates: start: 20060622
  7. CLONIDINE [Concomitant]

REACTIONS (18)
  - QUALITY OF LIFE DECREASED [None]
  - SKIN DISCOLOURATION [None]
  - INJURY [None]
  - ASTHENIA [None]
  - ACTIVITIES OF DAILY LIVING IMPAIRED [None]
  - GENERAL PHYSICAL HEALTH DETERIORATION [None]
  - ANXIETY [None]
  - NEPHROGENIC SYSTEMIC FIBROSIS [None]
  - PAIN [None]
  - HYPOAESTHESIA [None]
  - SKIN TIGHTNESS [None]
  - GAIT DISTURBANCE [None]
  - FEAR [None]
  - JOINT RANGE OF MOTION DECREASED [None]
  - MUSCULOSKELETAL STIFFNESS [None]
  - MOBILITY DECREASED [None]
  - PRURITUS GENERALISED [None]
  - SKIN DISORDER [None]
